FAERS Safety Report 4864256-3 (Version None)
Quarter: 2005Q4

REPORT INFORMATION
  Report Type: 
  Country: None (occurrence: None)
  Receive Date: 20051222
  Receipt Date: 20051215
  Transmission Date: 20060501
  Serious: Yes (Hospitalization)
  Sender: FDA-Public Use
  Company Number: 2005CG02082

PATIENT
  Age: 51 Year
  Sex: Male

DRUGS (11)
  1. TENORMIN [Suspect]
     Route: 048
     Dates: end: 20050207
  2. CRESTOR [Suspect]
     Route: 048
     Dates: start: 20041113, end: 20050207
  3. PROSCAR [Concomitant]
  4. AMLOR [Concomitant]
  5. CORVASAL [Concomitant]
  6. KARDEGIC [Concomitant]
  7. TRIATEC [Concomitant]
  8. LANZOR [Concomitant]
  9. NAPROXEN [Concomitant]
  10. MOVICOL [Concomitant]
  11. DI-ANTALVIC [Concomitant]

REACTIONS (3)
  - DYSPNOEA EXERTIONAL [None]
  - INTERSTITIAL LUNG DISEASE [None]
  - RALES [None]
